FAERS Safety Report 19082926 (Version 1)
Quarter: 2021Q2

REPORT INFORMATION
  Report Type: Spontaneous
  Country: IT (occurrence: IT)
  Receive Date: 20210401
  Receipt Date: 20210401
  Transmission Date: 20210717
  Serious: Yes (Other)
  Sender: FDA-Public Use
  Company Number: IT-PFIZER INC-2021340682

PATIENT
  Age: 50 Year
  Sex: Male
  Weight: 70 kg

DRUGS (8)
  1. CICLOSPORIN A [Suspect]
     Active Substance: CYCLOSPORINE
     Dosage: UNK, 1X/DAY  10 TO 5 M G/KG/DAY
  2. PREDNISONE. [Suspect]
     Active Substance: PREDNISONE
     Indication: IMMUNOSUPPRESSION
     Dosage: 0.4 MG/KG, 1X/DAY
  3. METHYLPREDNISOLONE SODIUM SUCCINATE. [Suspect]
     Active Substance: METHYLPREDNISOLONE SODIUM SUCCINATE
     Indication: IMMUNOSUPPRESSION
  4. PREDNISONE. [Suspect]
     Active Substance: PREDNISONE
     Dosage: 10 MG, 1X/DAY
  5. CICLOSPORIN A [Suspect]
     Active Substance: CYCLOSPORINE
     Dosage: 14 MG/KG, 1X/DAY
     Route: 048
  6. CICLOSPORIN A [Suspect]
     Active Substance: CYCLOSPORINE
     Indication: IMMUNOSUPPRESSION
     Dosage: 6 MG/KG, 1X/DAY
     Route: 042
  7. PREDNISONE. [Suspect]
     Active Substance: PREDNISONE
     Dosage: UNK UNK, 1X/DAY, 30 TO 15 MG,
  8. METHYLPREDNISOLONE SODIUM SUCCINATE. [Suspect]
     Active Substance: METHYLPREDNISOLONE SODIUM SUCCINATE
     Indication: TRANSPLANT REJECTION
     Dosage: 300 MG, 3X/DAY, AT LOW DOSES
     Route: 040

REACTIONS (3)
  - Kaposi^s sarcoma [Unknown]
  - Renal tubular necrosis [Unknown]
  - Transplant rejection [Unknown]
